FAERS Safety Report 12823524 (Version 1)
Quarter: 2016Q4

REPORT INFORMATION
  Report Type: Spontaneous
  Country: US (occurrence: US)
  Receive Date: 20161007
  Receipt Date: 20161007
  Transmission Date: 20170207
  Serious: Yes (Hospitalization, Other)
  Sender: FDA-Public Use
  Company Number: US-ALKERMES INC.-ALK-2016-002846

PATIENT
  Age: 41 Year
  Sex: Male
  Weight: 58.96 kg

DRUGS (1)
  1. VIVITROL [Suspect]
     Active Substance: NALTREXONE
     Indication: ALCOHOLISM
     Dosage: 360 MG, QMO
     Route: 030

REACTIONS (10)
  - Injection site erythema [Unknown]
  - Gait disturbance [Unknown]
  - Cyst rupture [Unknown]
  - Beta haemolytic streptococcal infection [Unknown]
  - Injection site infection [Unknown]
  - Injection site induration [Unknown]
  - Injection site reaction [Unknown]
  - Alcoholism [Unknown]
  - Injection site pain [Unknown]
  - Injection site mass [Unknown]

NARRATIVE: CASE EVENT DATE: 201609
